FAERS Safety Report 9290304 (Version 1)
Quarter: 2013Q2

REPORT INFORMATION
  Report Type: Spontaneous
  Country: CO (occurrence: CO)
  Receive Date: 20130515
  Receipt Date: 20130515
  Transmission Date: 20140414
  Serious: Yes (Death)
  Sender: FDA-Public Use
  Company Number: CO-UCBSA-085874

PATIENT
  Age: 64 Year
  Sex: Female

DRUGS (2)
  1. CIMZIA [Suspect]
     Indication: RHEUMATOID ARTHRITIS
     Route: 058
     Dates: start: 20120907
  2. HYDROCORTISONE [Concomitant]

REACTIONS (4)
  - Death [Fatal]
  - Spinal fracture [Unknown]
  - Sternal fracture [Unknown]
  - Respiratory distress [Unknown]
